FAERS Safety Report 8302503-6 (Version None)
Quarter: 2012Q2

REPORT INFORMATION
  Report Type: 
  Country: None (occurrence: None)
  Receive Date: 20120420
  Receipt Date: 20120410
  Transmission Date: 20120825
  Serious: Yes (Other)
  Sender: FDA-Public Use
  Company Number: CL-BRISTOL-MYERS SQUIBB COMPANY-16513723

PATIENT
  Age: 58 Year

DRUGS (1)
  1. IXEMPRA KIT [Suspect]

REACTIONS (2)
  - ANURIA [None]
  - RETROPERITONEAL FIBROSIS [None]
